FAERS Safety Report 9548253 (Version 1)
Quarter: 2013Q3

REPORT INFORMATION
  Report Type: Spontaneous
  Country: US (occurrence: None)
  Receive Date: 20130923
  Receipt Date: 20130923
  Transmission Date: 20140515
  Serious: Yes (Life-Threatening, Hospitalization, Disabling, Other)
  Sender: FDA-Public Use
  Company Number: None

PATIENT
  Age: 55 Year
  Sex: Female
  Weight: 92.99 kg

DRUGS (9)
  1. LISINOPRIL [Suspect]
     Indication: HYPERTENSION
     Dosage: 1 PILL DAILY
     Route: 048
     Dates: end: 20130506
  2. METFORMIN ER [Suspect]
  3. AMLODIPINE [Suspect]
  4. SERTRALINE [Suspect]
  5. RANITIDINE [Suspect]
  6. BUSPIRONE [Suspect]
  7. MULTIVITAMINS [Concomitant]
  8. VITAMIN D [Concomitant]
  9. TYLENOL [Concomitant]

REACTIONS (1)
  - Angioedema [None]
